FAERS Safety Report 7450328 (Version 3)
Quarter: 2014Q1

REPORT INFORMATION
  Report Type: Spontaneous
  Country: US (occurrence: US)
  Receive Date: 20100701
  Receipt Date: 20140203
  Transmission Date: 20141002
  Serious: Yes (Hospitalization, Other)
  Sender: FDA-Public Use
  Company Number: US-BAYER-201026247NA

PATIENT
  Age: 18 Year
  Sex: Female
  Weight: 54.42 kg

DRUGS (6)
  1. YAZ [Suspect]
     Indication: CONTRACEPTION
     Route: 048
     Dates: start: 200610, end: 2008
  2. YAZ [Suspect]
     Indication: ACNE
     Route: 048
     Dates: start: 2008, end: 200908
  3. YAZ [Suspect]
     Indication: POLYCYSTIC OVARIES
  4. YAZ [Suspect]
     Indication: PREMENSTRUAL SYNDROME
  5. YASMIN [Suspect]
     Indication: PRODUCT USED FOR UNKNOWN INDICATION
     Route: 048
     Dates: start: 200610, end: 2008
  6. YASMIN [Suspect]
     Indication: PRODUCT USED FOR UNKNOWN INDICATION
     Route: 048
     Dates: start: 2008, end: 200908

REACTIONS (3)
  - Appendicitis [Unknown]
  - Gallbladder disorder [Unknown]
  - Cholecystitis [None]
